FAERS Safety Report 25147397 (Version 3)
Quarter: 2025Q2

REPORT INFORMATION
  Report Type: Spontaneous
  Country: US (occurrence: US)
  Receive Date: 20250401
  Receipt Date: 20250627
  Transmission Date: 20250717
  Serious: Yes (Life-Threatening, Other)
  Sender: BRISTOL-MYERS SQUIBB COMPANY
  Company Number: US-BRISTOL-MYERS SQUIBB COMPANY-2025-047487

PATIENT
  Age: 17 Year
  Sex: Male

DRUGS (35)
  1. OPDIVO [Suspect]
     Active Substance: NIVOLUMAB
     Indication: Germ cell cancer
     Route: 042
     Dates: start: 20241101, end: 20250327
  2. GEMCITABINE [Suspect]
     Active Substance: GEMCITABINE
     Indication: Germ cell cancer
     Dates: start: 20241101, end: 20250327
  3. LENVATINIB [Suspect]
     Active Substance: LENVATINIB
     Indication: Germ cell cancer
     Dates: start: 20241101, end: 20250327
  4. LENVATINIB [Suspect]
     Active Substance: LENVATINIB
     Dosage: TAKE 12 MG BY MOUTH 1 TIME PER DAY, 30 EACH, DAILY DOSE CARD
     Route: 048
  5. LENVATINIB [Suspect]
     Active Substance: LENVATINIB
     Route: 048
  6. EMLA [Concomitant]
     Active Substance: LIDOCAINE\PRILOCAINE
     Indication: Product used for unknown indication
     Route: 061
  7. MS CONTIN [Concomitant]
     Active Substance: MORPHINE SULFATE
     Indication: Pain
     Dosage: MORPHINE SULFATE SR (12 HR), TAKE 1 TABLET BY MOUTH EVERY 12 HOURS AS NEEDED FOR SEVERE PAIN, 30 TAB
     Route: 048
  8. OXYCODONE [Concomitant]
     Active Substance: OXYCODONE
     Indication: Pain
     Dosage: OXYCODONE (IMMEDIATE RELEASE), TAKE 1 TABLET (5 MG) BY MOUTH EVERY 6 HOURS AS NEEDED FOR MODERATE PA
     Route: 048
  9. SYNTHROID [Concomitant]
     Active Substance: LEVOTHYROXINE SODIUM
     Indication: Product used for unknown indication
     Dosage: LEVOTHYROXINE, TAKE 1 TABLET BY MOUTH 1 TIME A DAY BEFORE?BREAKFAST, 30 TABLET
     Route: 048
  10. ATIVAN [Concomitant]
     Active Substance: LORAZEPAM
     Indication: Product used for unknown indication
     Dosage: LORAZEPAM, TAKE 1/2 TABLET BY?MOUTH 2 TIMES A DAY, 30 TABLET
     Route: 048
  11. LYRICA [Concomitant]
     Active Substance: PREGABALIN
     Indication: Product used for unknown indication
     Dosage: PREGABALIN, TAKE 1 CAPSULE BY MOUTH 2 TIMES A DAY, 60 CAPSULE
     Route: 048
  12. KYTRIL [Concomitant]
     Active Substance: GRANISETRON HYDROCHLORIDE
     Indication: Product used for unknown indication
     Dosage: GRANISETRON, TAKE 1 TABLET BY MOUTH?2 TIMES A DAY, 60 TABLET
     Route: 048
  13. AMOXIL [AMOXICILLIN SODIUM] [Concomitant]
     Indication: Product used for unknown indication
     Route: 048
  14. MARINOL [Concomitant]
     Active Substance: DRONABINOL
     Indication: Product used for unknown indication
     Dosage: DRONABINOL, TAKE 1 CAPSULE (5 MG) BY MOUTH 2 TIMES A DAY BEFORE MEALS, 60 CAPSULE
     Route: 048
  15. NARCAN [Concomitant]
     Active Substance: NALOXONE HYDROCHLORIDE
     Indication: Product used for unknown indication
  16. EMEND [Concomitant]
     Active Substance: APREPITANT
     Indication: Product used for unknown indication
     Dosage: APREPITANT, TAKE 1 CAPSULE BY MOUTH 1 TIME PER DAY, 30 CAPSULE
     Route: 048
  17. CELEBREX [Concomitant]
     Active Substance: CELECOXIB
     Indication: Product used for unknown indication
     Dosage: CELECOXIB, TAKE 1 CAPSULE BY MOUTH 2 TIMES A DAY, 180 CAPSULE
     Route: 048
  18. REGLAN [Concomitant]
     Active Substance: METOCLOPRAMIDE HYDROCHLORIDE
     Indication: Product used for unknown indication
     Dosage: METOCLOPRAMIDE, TAKE 1 TABLET (10 MG) BY MOUTH 3 TIMES PER DAY BEFORE MEALS, 90 TABLET
     Route: 048
  19. SULFAMETHOXAZOLE\TRIMETHOPRIM [Concomitant]
     Active Substance: SULFAMETHOXAZOLE\TRIMETHOPRIM
     Indication: Product used for unknown indication
     Dosage: DOUBLE STRENGTH (BACTRIM DS, SEPTRA DS) 800-160 MG DOUBLE STRENGTH TABLET, TAKE 1 TABLET BY MOUTH 48
     Route: 048
  20. TRANSDERM SCOP [Concomitant]
     Active Substance: SCOPOLAMINE
     Indication: Product used for unknown indication
     Dosage: SCOPOLAMINE, APPLY 1 PATCH TO THE SKIN EVERY 3 DAYS, 4 PATCH
  21. ZYPREXA [Concomitant]
     Active Substance: OLANZAPINE
     Indication: Product used for unknown indication
     Dosage: OLANZAPINE, TAKE 1 TABLET BY MOUTH EVERY NIGHT AT BEDTIME, 90 TABLET
     Route: 048
  22. PRILOSEC [Concomitant]
     Active Substance: OMEPRAZOLE MAGNESIUM
     Indication: Product used for unknown indication
     Dosage: OMEPRAZOLE, TAKE 1 CAPSULE (20 MG) BY MOUTH 2 TIMES A DAY, 180 CAPSULE
     Route: 048
  23. ZOVIRAX [Concomitant]
     Active Substance: ACYCLOVIR
     Indication: Product used for unknown indication
     Dosage: ACYCLOVIR, TAKE 1 TABLET (400 MG) BY MOUTH 2 TIMES A DAY, 180 TABLET
     Route: 048
  24. SENNA AND DOCUSATE SODIUM [Concomitant]
     Active Substance: DOCUSATE SODIUM\SENNOSIDES
     Indication: Product used for unknown indication
     Dosage: (SENOKOT-S;PERICOLACE) 8.6-50 MG TABLET, TAKE 2 TABLETS BY MOUTH 2 TIMES A DAY, 120 TABLET
     Route: 048
  25. MIRALAX [Concomitant]
     Active Substance: POLYETHYLENE GLYCOL 3350
     Indication: Product used for unknown indication
     Dosage: POLYETHYLENE GLYCOL 17 GM/SCOOP, TAKE 3 TEASPOONSFUL (17 G) BY MOUTH 2TIMES A DAY. DISSOLVE IN 4 TO
     Route: 048
  26. ZYRTEC [Concomitant]
     Active Substance: CETIRIZINE HYDROCHLORIDE
     Indication: Product used for unknown indication
     Dosage: CETIRIZINE, TAKE 10 MG BY MOUTH 1 TIME PER DAY
     Route: 048
  27. ELOXATIN [Concomitant]
     Active Substance: OXALIPLATIN
     Indication: Product used for unknown indication
     Route: 042
     Dates: start: 20250428
  28. ELOXATIN [Concomitant]
     Active Substance: OXALIPLATIN
     Route: 042
  29. TYLENOL [Concomitant]
     Active Substance: ACETAMINOPHEN
     Indication: Product used for unknown indication
     Route: 048
  30. EPINEPHRINE [Concomitant]
     Active Substance: EPINEPHRINE
     Indication: Product used for unknown indication
     Route: 030
  31. ACRIVASTINE [Concomitant]
     Active Substance: ACRIVASTINE
     Indication: Product used for unknown indication
     Route: 042
  32. METHYLPREDNISOLONE SODIUM SUCCINATE [Concomitant]
     Active Substance: METHYLPREDNISOLONE SODIUM SUCCINATE
     Indication: Product used for unknown indication
     Route: 042
  33. ALBUTEROL [Concomitant]
     Active Substance: ALBUTEROL
     Indication: Product used for unknown indication
  34. SODIUM CHLORIDE [Concomitant]
     Active Substance: SODIUM CHLORIDE
     Indication: Product used for unknown indication
     Route: 042
     Dates: start: 20250428
  35. SODIUM CHLORIDE [Concomitant]
     Active Substance: SODIUM CHLORIDE
     Route: 042

REACTIONS (2)
  - Malignant neoplasm progression [Unknown]
  - Off label use [Unknown]

NARRATIVE: CASE EVENT DATE: 20250319
